FAERS Safety Report 17531494 (Version 2)
Quarter: 2020Q2

REPORT INFORMATION
  Report Type: Spontaneous
  Country: US (occurrence: US)
  Receive Date: 20200311
  Receipt Date: 20200429
  Transmission Date: 20200713
  Serious: No
  Sender: FDA-Public Use
  Company Number: US-SA-2020SA059526

PATIENT
  Age: 12 Year
  Sex: Female

DRUGS (1)
  1. DUPIXENT [Suspect]
     Active Substance: DUPILUMAB
     Indication: PRODUCT USED FOR UNKNOWN INDICATION
     Dosage: 200 MG, QOW
     Route: 058
     Dates: start: 202002

REACTIONS (4)
  - Eye pruritus [Recovering/Resolving]
  - Therapeutic response decreased [Unknown]
  - Ocular hyperaemia [Recovering/Resolving]
  - Oral mucosal blistering [Unknown]

NARRATIVE: CASE EVENT DATE: 2020
